FAERS Safety Report 9938614 (Version 1)
Quarter: 2014Q1

REPORT INFORMATION
  Report Type: Spontaneous
  Country: KE (occurrence: KE)
  Receive Date: 20140303
  Receipt Date: 20140303
  Transmission Date: 20141002
  Serious: Yes (Death)
  Sender: FDA-Public Use
  Company Number: KE-JNJFOC-20140215828

PATIENT
  Age: 75 Year
  Sex: Male

DRUGS (3)
  1. XARELTO [Suspect]
     Indication: THROMBOSIS PROPHYLAXIS
     Route: 048
     Dates: start: 201401, end: 201402
  2. XARELTO [Suspect]
     Indication: HIP SURGERY
     Route: 048
     Dates: start: 201401, end: 201402
  3. XARELTO [Suspect]
     Indication: HIP FRACTURE
     Route: 048
     Dates: start: 201401, end: 201402

REACTIONS (3)
  - Pulmonary embolism [Fatal]
  - Circulatory collapse [Fatal]
  - Drug ineffective [Unknown]
